FAERS Safety Report 8199183-X (Version None)
Quarter: 2012Q1

REPORT INFORMATION
  Report Type: 
  Country: None (occurrence: None)
  Receive Date: 20120309
  Receipt Date: 20120307
  Transmission Date: 20120608
  Serious: Yes (Other)
  Sender: FDA-Public Use
  Company Number: US-PFIZER INC-2012061924

PATIENT
  Sex: Female
  Weight: 82.086 kg

DRUGS (26)
  1. FOLIC ACID [Concomitant]
     Dosage: 1 MG, DAILY
  2. DOCUSATE SODIUM [Concomitant]
     Dosage: 200 MG, 2X/DAY
  3. POTASSIUM CHLORIDE [Concomitant]
     Indication: BLOOD POTASSIUM DECREASED
     Dosage: 20 MEQ, 2X/DAY
  4. ISOSORBIDE SR [Concomitant]
     Dosage: 120MG IN THE DAY AND 60MG AT BEDTIME
  5. INSULIN GLARGINE [Concomitant]
     Dosage: 26 IU, DAILY
  6. FLUTICASONE PROPIONATE [Concomitant]
     Dosage: TWO SPRAYS IN EACH NOSTRIL AT BEDTIME
  7. OMEPRAZOLE [Concomitant]
     Indication: GASTROOESOPHAGEAL REFLUX DISEASE
     Dosage: UNK
  8. VIACTIV CALCIUM CHEW [Concomitant]
     Dosage: UNK
     Route: 048
  9. CLOPIDOGREL [Concomitant]
     Dosage: 75 MG, DAILY
  10. CHANTIX [Suspect]
     Indication: SMOKING CESSATION THERAPY
     Dosage: 0.5 MG, DAILY
     Route: 048
     Dates: start: 20120201, end: 20120201
  11. CRESTOR [Concomitant]
     Indication: BLOOD CHOLESTEROL ABNORMAL
     Dosage: 40 MG, DAILY
  12. KEPPRA [Concomitant]
     Dosage: 250 MG, DAILY
  13. DUONEB [Concomitant]
     Dosage: USE 1, 4X/DAY
  14. SPIRONOLACTONE [Concomitant]
     Indication: HYPERTENSION
     Dosage: 20 MG, DAILY
  15. METOPROLOL TARTRATE [Concomitant]
     Dosage: 25 MG, DAILY
  16. LISINOPRIL [Concomitant]
     Dosage: 5 MG, DAILY
  17. VENLAFAXINE HCL EXTENDED-RELEASE [Concomitant]
     Dosage: 225 MG, DAILY
  18. SYMBICORT [Concomitant]
     Dosage: 2 PUFFS, 2X/DAY
  19. MIRTAZAPINE [Concomitant]
     Dosage: 15 MG, DAILY AT BEDTIME
  20. WARFARIN [Concomitant]
     Dosage: 5 MG, DAILY
  21. NITROGLYCERIN [Concomitant]
     Dosage: UNK
  22. ALBUTEROL [Concomitant]
     Dosage: 1 PUFF, 4X/DAY
  23. CHANTIX [Suspect]
     Dosage: 0.5 MG, 2X/DAY
     Dates: start: 20120201
  24. CALCIUM [Concomitant]
     Dosage: 600 MG, 2X/DAY
  25. FUROSEMIDE [Concomitant]
     Dosage: 20 MG, DAILY
  26. PROMETHAZINE W/ CODEINE [Concomitant]
     Dosage: 2 TEASPOONS EVERY 6 HOURS, AS NEEDED

REACTIONS (1)
  - INTERSTITIAL LUNG DISEASE [None]
